FAERS Safety Report 14689841 (Version 1)
Quarter: 2018Q1

REPORT INFORMATION
  Report Type: Spontaneous
  Country: US (occurrence: US)
  Receive Date: 20180328
  Receipt Date: 20180328
  Transmission Date: 20180509
  Serious: No
  Sender: FDA-Public Use
  Company Number: US-SMITH AND NEPHEW, INC-2017SMT00513

PATIENT
  Age: 77 Year
  Sex: Male
  Weight: 68.27 kg

DRUGS (3)
  1. PLAVIX [Concomitant]
     Active Substance: CLOPIDOGREL BISULFATE
  2. CRESTOR [Concomitant]
     Active Substance: ROSUVASTATIN CALCIUM
  3. COLLAGENASE SANTYL [Suspect]
     Active Substance: COLLAGENASE CLOSTRIDIUM HISTOLYTICUM
     Indication: SKIN ULCER
     Dosage: UNK UNK, ONCE
     Route: 061
     Dates: start: 20170807

REACTIONS (3)
  - Application site pain [Recovering/Resolving]
  - Expired product administered [Not Recovered/Not Resolved]
  - Paraesthesia [Recovering/Resolving]

NARRATIVE: CASE EVENT DATE: 20170807
